FAERS Safety Report 13301316 (Version 3)
Quarter: 2017Q2

REPORT INFORMATION
  Report Type: Spontaneous
  Country: US (occurrence: US)
  Receive Date: 20170307
  Receipt Date: 20170420
  Transmission Date: 20170830
  Serious: No
  Sender: FDA-Public Use
  Company Number: US-PFIZER INC-2017099367

PATIENT
  Age: 70 Year
  Sex: Male
  Weight: 104 kg

DRUGS (11)
  1. SERTRALINE [Concomitant]
     Active Substance: SERTRALINE HYDROCHLORIDE
     Indication: DEPRESSION
     Dosage: 100 MG, 1X/DAY
  2. EUCRISA [Suspect]
     Active Substance: CRISABOROLE
     Dosage: APPLY TWICE DAILY TO AFFECTED AREAS, 2X/DAY
     Dates: start: 20170301
  3. ATORVASTATIN [Concomitant]
     Active Substance: ATORVASTATIN
     Indication: BLOOD CHOLESTEROL ABNORMAL
     Dosage: 10 MG, ONCE AT NIGHT
     Dates: start: 2010
  4. ALPRAZOLAM XR [Concomitant]
     Active Substance: ALPRAZOLAM
     Indication: ANXIETY
     Dosage: 1 MG, ONCE IN THE MORNING
  5. LOSARTAN. [Concomitant]
     Active Substance: LOSARTAN
     Indication: HYPERTENSION
     Dosage: 50 MG, 1X/DAY
     Dates: start: 2010
  6. ASPIRIN. [Concomitant]
     Active Substance: ASPIRIN
     Indication: CARDIAC DISORDER
     Dosage: 81 MG, 1X/DAY
     Dates: start: 2016
  7. EUCRISA [Suspect]
     Active Substance: CRISABOROLE
     Dosage: APPLY TWICE DAILY TO AFFECTED AREAS, 2X/DAY
     Dates: start: 20170301
  8. METFORMIN [Concomitant]
     Active Substance: METFORMIN HYDROCHLORIDE
     Indication: DIABETES MELLITUS
     Dosage: 500 MG, ONCE AT NIGHT
     Dates: start: 2015
  9. EUCRISA [Suspect]
     Active Substance: CRISABOROLE
     Indication: PSORIASIS
     Dosage: APPLY TWICE DAILY TO AFFECTED AREAS, 2X/DAY
     Dates: start: 20170301
  10. CLOPIDOGREL [Concomitant]
     Active Substance: CLOPIDOGREL BISULFATE
     Indication: ANTICOAGULANT THERAPY
     Dosage: 75 MG, 1X/DAY
     Dates: start: 2016
  11. METOPROLOL. [Concomitant]
     Active Substance: METOPROLOL
     Indication: HYPERTENSION
     Dosage: 100 MG, 1X/DAY
     Dates: start: 2010

REACTIONS (2)
  - Burning sensation [Recovering/Resolving]
  - Product use in unapproved indication [Unknown]

NARRATIVE: CASE EVENT DATE: 20170301
